FAERS Safety Report 14691753 (Version 1)
Quarter: 2018Q1

REPORT INFORMATION
  Report Type: Spontaneous
  Country: US (occurrence: US)
  Receive Date: 20180329
  Receipt Date: 20180329
  Transmission Date: 20180509
  Serious: No
  Sender: FDA-Public Use
  Company Number: US-009507513-1803USA010890

PATIENT
  Age: 51 Year
  Sex: Female

DRUGS (3)
  1. SINGULAIR [Concomitant]
     Active Substance: MONTELUKAST SODIUM
  2. PROVENTIL [Concomitant]
     Active Substance: ALBUTEROL
     Dosage: AS NEEDED
     Route: 055
  3. ASMANEX [Suspect]
     Active Substance: MOMETASONE FUROATE
     Indication: ASTHMA
     Dosage: 1 DF, UNK
     Route: 055
     Dates: start: 2017

REACTIONS (4)
  - Cough [Not Recovered/Not Resolved]
  - Drug dose omission [Unknown]
  - Chest discomfort [Not Recovered/Not Resolved]
  - Product quality issue [Unknown]

NARRATIVE: CASE EVENT DATE: 20180322
